FAERS Safety Report 23454985 (Version 1)
Quarter: 2024Q1

REPORT INFORMATION
  Report Type: Other
  Country: ES (occurrence: None)
  Receive Date: 20240130
  Receipt Date: 20240130
  Transmission Date: 20240410
  Serious: Yes (Other)
  Sender: FDA-Public Use
  Company Number: ES-ROCHE-3495961

PATIENT

DRUGS (15)
  1. RITUXIMAB [Suspect]
     Active Substance: RITUXIMAB
     Indication: Rheumatic disorder
     Route: 065
  2. MYCOPHENOLATE MOFETIL [Suspect]
     Active Substance: MYCOPHENOLATE MOFETIL
     Indication: Immunosuppressant drug therapy
     Route: 065
  3. TOCILIZUMAB [Suspect]
     Active Substance: TOCILIZUMAB
     Indication: COVID-19
     Route: 065
  4. INFLIXIMAB [Suspect]
     Active Substance: INFLIXIMAB
     Indication: Immunosuppressant drug therapy
     Route: 065
  5. ADALIMUMAB [Suspect]
     Active Substance: ADALIMUMAB\ISOPROPYL ALCOHOL
     Indication: Immunosuppressant drug therapy
     Route: 065
  6. ETANERCEPT [Suspect]
     Active Substance: ETANERCEPT
     Indication: Immunosuppressant drug therapy
     Route: 065
  7. CERTOLIZUMAB [Suspect]
     Active Substance: CERTOLIZUMAB
     Indication: Immunosuppressant drug therapy
     Route: 065
  8. GOLIMUMAB [Suspect]
     Active Substance: GOLIMUMAB
     Indication: Immunosuppressant drug therapy
     Route: 065
  9. METHOTREXATE [Suspect]
     Active Substance: METHOTREXATE
     Indication: Immunosuppressant drug therapy
     Route: 065
  10. LEFLUNOMIDE [Suspect]
     Active Substance: LEFLUNOMIDE
     Indication: Immunosuppressant drug therapy
     Route: 065
  11. AZATHIOPRINE [Suspect]
     Active Substance: AZATHIOPRINE
     Indication: Immunosuppressant drug therapy
     Route: 065
  12. CYCLOPHOSPHAMIDE [Suspect]
     Active Substance: CYCLOPHOSPHAMIDE
     Indication: Immunosuppressant drug therapy
     Route: 067
  13. TACROLIMUS [Suspect]
     Active Substance: TACROLIMUS
     Indication: Immunosuppressant drug therapy
     Route: 065
  14. USTEKINUMAB [Suspect]
     Active Substance: USTEKINUMAB
     Indication: Immunosuppressant drug therapy
     Route: 065
  15. ABATACEPT [Suspect]
     Active Substance: ABATACEPT
     Indication: Immunosuppressant drug therapy
     Route: 065

REACTIONS (10)
  - COVID-19 [Unknown]
  - Acute respiratory distress syndrome [Unknown]
  - Renal failure [Unknown]
  - Cardiac failure [Unknown]
  - Sepsis [Unknown]
  - Pulmonary embolism [Unknown]
  - Haemophagocytic lymphohistiocytosis [Unknown]
  - Pleural effusion [Unknown]
  - Pneumonia [Unknown]
  - Off label use [Unknown]
